FAERS Safety Report 9729877 (Version 1)
Quarter: 2013Q4

REPORT INFORMATION
  Report Type: Spontaneous
  Country: US (occurrence: US)
  Receive Date: 20131204
  Receipt Date: 20131204
  Transmission Date: 20140711
  Serious: No
  Sender: FDA-Public Use
  Company Number: US-009507513-1311USA008514

PATIENT
  Sex: Female

DRUGS (1)
  1. AZASITE [Suspect]
     Indication: BLEPHARITIS
     Dosage: TAKEN ONCE DAILY
     Route: 047
     Dates: start: 201310

REACTIONS (2)
  - Incorrect drug administration duration [Unknown]
  - Eye irritation [Unknown]
